FAERS Safety Report 6542365-0 (Version None)
Quarter: 2010Q1

REPORT INFORMATION
  Report Type: 
  Country: None (occurrence: None)
  Receive Date: 20100119
  Receipt Date: 20100113
  Transmission Date: 20100710
  Serious: Yes (Hospitalization)
  Sender: FDA-Public Use
  Company Number: GXKR2010SK00651

PATIENT
  Sex: Female

DRUGS (8)
  1. KETONAL (NGX) [Suspect]
     Indication: BACK PAIN
     Dosage: UNK
     Route: 051
     Dates: start: 20090825, end: 20090825
  2. SAXAGLIPTIN [Concomitant]
     Indication: TYPE 2 DIABETES MELLITUS
     Dosage: UNK
     Route: 048
     Dates: start: 20080703
  3. GLUCOPHAGE [Concomitant]
     Indication: TYPE 2 DIABETES MELLITUS
     Dosage: UNK
     Route: 048
     Dates: start: 20080703
  4. PLACEBO [Concomitant]
     Indication: TYPE 2 DIABETES MELLITUS
     Dosage: UNK
     Route: 048
     Dates: start: 20080703
  5. GLIPIZIDE [Concomitant]
     Indication: TYPE 2 DIABETES MELLITUS
     Dosage: UNK
     Route: 048
     Dates: start: 20080703
  6. ACECLOFENAC [Concomitant]
     Indication: BACK PAIN
     Dosage: UNK
     Route: 048
     Dates: start: 20090825, end: 20090828
  7. TRAMADOL [Concomitant]
     Indication: BACK PAIN
     Dosage: UNK
     Route: 048
     Dates: start: 20090825, end: 20090828
  8. METFORMIN HCL [Concomitant]
     Dosage: UNK
     Dates: start: 20080703

REACTIONS (1)
  - HYPERTENSIVE CRISIS [None]
